FAERS Safety Report 4955917-6 (Version None)
Quarter: 2006Q1

REPORT INFORMATION
  Report Type: 
  Country: None (occurrence: None)
  Receive Date: 20060327
  Receipt Date: 20060327
  Transmission Date: 20060701
  Serious: No
  Sender: FDA-Public Use
  Company Number: None

PATIENT
  Sex: Female
  Weight: 8.8451 kg

DRUGS (1)
  1. CHILDREN'S DIMETAPP INFANT FORMU .8 ML/PSEUDOPHEDRINE, USP DIMETAPP/WY [Suspect]
     Indication: NASOPHARYNGITIS
     Dosage: 3/4 TSP 1X PO
     Route: 048
     Dates: start: 20060322, end: 20060322

REACTIONS (2)
  - INCORRECT DOSE ADMINISTERED [None]
  - MEDICATION ERROR [None]
